FAERS Safety Report 9284422 (Version 1)
Quarter: 2013Q2

REPORT INFORMATION
  Report Type: Spontaneous
  Country: US (occurrence: US)
  Receive Date: 20130510
  Receipt Date: 20130510
  Transmission Date: 20140414
  Serious: Yes (Other)
  Sender: FDA-Public Use
  Company Number: CHPA2013US007889

PATIENT
  Age: 79 Year
  Sex: Female

DRUGS (2)
  1. EXCEDRIN PM [Suspect]
     Indication: INSOMNIA
     Dosage: 1 TO 2 DF, QHS
     Route: 048
  2. PLAVIX [Concomitant]

REACTIONS (11)
  - Hypertension [Recovered/Resolved]
  - Back pain [Unknown]
  - Insomnia [Unknown]
  - Condition aggravated [Unknown]
  - Pain [Unknown]
  - Middle insomnia [Unknown]
  - Weight decreased [Unknown]
  - Off label use [Unknown]
  - Therapeutic response unexpected [Unknown]
  - Incorrect dose administered [Unknown]
  - Incorrect drug administration duration [Unknown]
